FAERS Safety Report 17376580 (Version 4)
Quarter: 2020Q4

REPORT INFORMATION
  Report Type: Report from Study
  Country: CO (occurrence: CO)
  Receive Date: 20200206
  Receipt Date: 20201021
  Transmission Date: 20210113
  Serious: Yes (Hospitalization)
  Sender: FDA-Public Use
  Company Number: NVSC2019CO074873

PATIENT
  Sex: Female

DRUGS (6)
  1. LOSARTAN. [Suspect]
     Active Substance: LOSARTAN
     Dosage: 250 MG, QD
     Route: 048
  2. TASIGNA [Suspect]
     Active Substance: NILOTINIB
     Indication: CHRONIC MYELOID LEUKAEMIA
     Dosage: 400 MG, QD
     Route: 048
     Dates: start: 2016
  3. TASIGNA [Suspect]
     Active Substance: NILOTINIB
     Dosage: 150 MG, QD
     Route: 048
  4. METFORMIN [Suspect]
     Active Substance: METFORMIN HYDROCHLORIDE
     Indication: DIABETES MELLITUS
     Dosage: UNK UNK, QD
     Route: 048
  5. LOSARTAN. [Suspect]
     Active Substance: LOSARTAN
     Indication: HYPERTENSION
     Dosage: 50 MG, Q12H
     Route: 048
  6. OMEPRAZOLE. [Concomitant]
     Active Substance: OMEPRAZOLE
     Indication: GASTRITIS
     Dosage: 250 MG, QD
     Route: 048

REACTIONS (10)
  - Effusion [Unknown]
  - Cough [Unknown]
  - Depressed mood [Unknown]
  - Platelet count decreased [Recovered/Resolved]
  - Asthenia [Unknown]
  - Inappropriate schedule of product administration [Unknown]
  - Eating disorder [Unknown]
  - Chronic myeloid leukaemia recurrent [Unknown]
  - Malaise [Unknown]
  - Pneumonia [Unknown]
